FAERS Safety Report 17839152 (Version 1)
Quarter: 2020Q2

REPORT INFORMATION
  Report Type: Spontaneous
  Country: US (occurrence: US)
  Receive Date: 20200528
  Receipt Date: 20200528
  Transmission Date: 20200714
  Serious: No
  Sender: FDA-Public Use
  Company Number: None

PATIENT
  Age: 62 Year
  Sex: Female

DRUGS (1)
  1. DOCETAXEL SDV 20MG/ML [Suspect]
     Active Substance: DOCETAXEL
     Dosage: ?          OTHER
     Route: 042
     Dates: start: 20200416, end: 20200507

REACTIONS (1)
  - Drug hypersensitivity [None]

NARRATIVE: CASE EVENT DATE: 20200528
